FAERS Safety Report 8119570-5 (Version None)
Quarter: 2012Q1

REPORT INFORMATION
  Report Type: 
  Country: None (occurrence: None)
  Receive Date: 20120207
  Receipt Date: 20120202
  Transmission Date: 20120608
  Serious: Yes (Death)
  Sender: FDA-Public Use
  Company Number: PHEH2012US002950

PATIENT
  Sex: Female

DRUGS (21)
  1. SONATA [Concomitant]
     Dosage: 5 MG, UNK
  2. MULTI-VITAMINS [Concomitant]
     Dosage: UNK
  3. GABAPENTIN [Concomitant]
     Dosage: 600 MG, UNK
  4. NEXIUM [Concomitant]
     Dosage: 40 MG, UNK
  5. VITAMIN D [Concomitant]
     Dosage: 1000 U, UNK
  6. LORAZEPAM [Concomitant]
     Dosage: 1 MG, UNK
  7. IMODIUM A-D [Concomitant]
     Dosage: 2 MG, UNK
  8. AFINITOR [Suspect]
     Dosage: 10 MG, DAILY
     Route: 048
  9. ZOCOR [Concomitant]
     Dosage: 40 MG, UNK
  10. ONDANSETRON HCL [Concomitant]
     Dosage: 8 MG, UNK
  11. PREDNISONE [Concomitant]
     Dosage: 10 MG, UNK
  12. REGLAN [Concomitant]
     Dosage: 10 MG, UNK
  13. ZANTAC [Concomitant]
     Dosage: UNK
  14. COLESTID [Concomitant]
     Dosage: 1 G,
  15. ASCORBIC ACID [Concomitant]
     Dosage: 1000 MG, UNK
  16. LOMOTIL [Concomitant]
     Dosage: 2.5 MG, UNK
  17. LOPRESSOR [Concomitant]
     Dosage: 50 MG, UNK
  18. ZOLOFT [Concomitant]
     Dosage: 10 MG, UNK
  19. LOVENOX [Concomitant]
     Dosage: 80/ 0.8 ML, UNK
  20. DIOVAN [Concomitant]
     Dosage: 40 MG, UNK
  21. FIORICET [Concomitant]
     Dosage: UNK

REACTIONS (1)
  - DEATH [None]
